FAERS Safety Report 17308264 (Version 1)
Quarter: 2020Q1

REPORT INFORMATION
  Report Type: Spontaneous
  Country: US (occurrence: US)
  Receive Date: 20200123
  Receipt Date: 20200123
  Transmission Date: 20200409
  Serious: Yes (Other)
  Sender: FDA-Public Use
  Company Number: US-TOLMAR, INC.-19US019778

PATIENT
  Age: 83 Year
  Sex: Male

DRUGS (2)
  1. IMIQUIMOD. [Suspect]
     Active Substance: IMIQUIMOD
     Indication: BASAL CELL CARCINOMA
  2. IMIQUIMOD. [Suspect]
     Active Substance: IMIQUIMOD
     Indication: ACTINIC KERATOSIS
     Dosage: 5 PERCENT, TWICE WEEKLY
     Route: 061

REACTIONS (2)
  - Erythema multiforme [Recovered/Resolved]
  - Off label use [Unknown]
